FAERS Safety Report 11628910 (Version 4)
Quarter: 2015Q4

REPORT INFORMATION
  Report Type: Report from Study
  Country: US (occurrence: US)
  Receive Date: 20151014
  Receipt Date: 20151110
  Transmission Date: 20160304
  Serious: Yes (Hospitalization, Other)
  Sender: FDA-Public Use
  Company Number: US-GILEAD-2015-0176778

PATIENT
  Age: 69 Year
  Sex: Female

DRUGS (6)
  1. SILDENAFIL. [Concomitant]
     Active Substance: SILDENAFIL
  2. AMBRISENTAN [Suspect]
     Active Substance: AMBRISENTAN
     Indication: PRODUCT USED FOR UNKNOWN INDICATION
     Dosage: 5 MG, QD
     Route: 065
     Dates: start: 20140610
  3. REVATIO [Concomitant]
     Active Substance: SILDENAFIL CITRATE
  4. AMBRISENTAN [Suspect]
     Active Substance: AMBRISENTAN
     Dosage: UNK
  5. TYVASO [Concomitant]
     Active Substance: TREPROSTINIL
  6. WARFARIN [Concomitant]
     Active Substance: WARFARIN

REACTIONS (3)
  - Fluid retention [Unknown]
  - Pulmonary arterial hypertension [Unknown]
  - Unevaluable event [Unknown]
